FAERS Safety Report 5027019-4 (Version None)
Quarter: 2006Q2

REPORT INFORMATION
  Report Type: 
  Country: None (occurrence: None)
  Receive Date: 20060615
  Receipt Date: 20060609
  Transmission Date: 20061013
  Serious: Yes (Other)
  Sender: FDA-Public Use
  Company Number: SE-BRISTOL-MYERS SQUIBB COMPANY-13406004

PATIENT
  Age: 47 Year
  Sex: Female

DRUGS (2)
  1. MONOPRIL [Suspect]
     Dates: start: 20010101
  2. LANTUS [Suspect]
     Dosage: STARTED IN NOV-DEC 2004
     Dates: start: 20041101

REACTIONS (3)
  - EOSINOPHILIC CELLULITIS [None]
  - PRURITUS [None]
  - RASH [None]
